FAERS Safety Report 8131850-6 (Version None)
Quarter: 2012Q1

REPORT INFORMATION
  Report Type: 
  Country: None (occurrence: None)
  Receive Date: 20120213
  Receipt Date: 20120201
  Transmission Date: 20120608
  Serious: Yes (Other)
  Sender: FDA-Public Use
  Company Number: US-SANOFI-AVENTIS-2012SA006804

PATIENT
  Age: 88 Year
  Sex: Female

DRUGS (2)
  1. ZOLPIDEM TARTRATE [Suspect]
     Dates: start: 20060101
  2. AMBIEN CR [Suspect]
     Route: 048
     Dates: start: 20110101, end: 20120131

REACTIONS (8)
  - INCORRECT DRUG ADMINISTRATION DURATION [None]
  - THERAPY REGIMEN CHANGED [None]
  - CONDITION AGGRAVATED [None]
  - DRUG DEPENDENCE [None]
  - HALLUCINATION [None]
  - URINARY TRACT INFECTION [None]
  - AMNESIA [None]
  - THERAPEUTIC RESPONSE PROLONGED [None]
